FAERS Safety Report 7936933-9 (Version None)
Quarter: 2011Q4

REPORT INFORMATION
  Report Type: 
  Country: None (occurrence: None)
  Receive Date: 20111123
  Receipt Date: 20111117
  Transmission Date: 20120403
  Serious: No
  Sender: FDA-Public Use
  Company Number: US-PFIZER INC-2011284816

PATIENT
  Sex: Female
  Weight: 81.633 kg

DRUGS (5)
  1. GUANOSINE [Concomitant]
     Dosage: UNK
  2. AZITHROMYCIN [Suspect]
     Indication: BRONCHITIS
  3. CEFTIN [Concomitant]
     Dosage: UNK
  4. AZITHROMYCIN [Suspect]
     Indication: NASAL CONGESTION
     Dosage: 500 MG, 2X/DAY
     Route: 048
     Dates: start: 19950101
  5. COGENTIN [Concomitant]
     Dosage: UNK

REACTIONS (1)
  - DRUG INEFFECTIVE [None]
